FAERS Safety Report 5475170-7 (Version None)
Quarter: 2007Q4

REPORT INFORMATION
  Report Type: 
  Country: None (occurrence: None)
  Receive Date: 20071002
  Receipt Date: 20070919
  Transmission Date: 20080405
  Serious: Yes (Hospitalization)
  Sender: FDA-Public Use
  Company Number: US-ELI_LILLY_AND_COMPANY-US200709003901

PATIENT
  Sex: Male

DRUGS (3)
  1. FORTEO [Suspect]
     Dosage: UNK, UNK
     Dates: start: 20040101
  2. FORTEO [Suspect]
     Dosage: UNK, UNK
     Dates: start: 20060101
  3. FORTEO [Suspect]
     Dates: start: 20070101

REACTIONS (9)
  - ARTHRALGIA [None]
  - ARTHRITIS [None]
  - CONTUSION [None]
  - ERYTHEMA [None]
  - FALL [None]
  - JOINT SWELLING [None]
  - PAIN IN EXTREMITY [None]
  - SKIN CHAPPED [None]
  - URTICARIA [None]
